FAERS Safety Report 12314625 (Version 9)
Quarter: 2016Q4

REPORT INFORMATION
  Report Type: Report from Study
  Country: JP (occurrence: JP)
  Receive Date: 20160428
  Receipt Date: 20161218
  Transmission Date: 20170207
  Serious: Yes (Life-Threatening, Hospitalization, Other)
  Sender: FDA-Public Use
  Company Number: JP-BRISTOL-MYERS SQUIBB COMPANY-BMS-2016-010274

PATIENT
  Age: 37 Year
  Sex: Male

DRUGS (13)
  1. ACETAMINOPHEN AND CODEINE [Concomitant]
     Active Substance: ACETAMINOPHEN\CODEINE PHOSPHATE
     Indication: PYREXIA
     Route: 065
  2. CEFCAPENE PIVOXIL [Concomitant]
     Active Substance: CEFCAPENE PIVOXIL
     Indication: INFECTION PROPHYLAXIS
     Dosage: UNK
     Route: 065
     Dates: start: 20160201, end: 20160203
  3. ACETAMINOPHEN AND CODEINE [Concomitant]
     Active Substance: ACETAMINOPHEN\CODEINE PHOSPHATE
     Indication: COUGH
     Dosage: UNK
     Route: 065
     Dates: start: 20160203, end: 20160209
  4. IPILIMUMAB [Suspect]
     Active Substance: IPILIMUMAB
     Indication: MALIGNANT MELANOMA
     Dosage: 3 MG/KG, UNK
     Route: 041
     Dates: start: 20160113
  5. ZANTAC [Concomitant]
     Active Substance: RANITIDINE HYDROCHLORIDE
     Indication: PYREXIA
     Dosage: 75 MG, UNK
     Route: 065
     Dates: start: 20160217, end: 20160224
  6. HYALEIN [Concomitant]
     Active Substance: HYALURONATE SODIUM
     Indication: PRODUCT USED FOR UNKNOWN INDICATION
     Route: 065
  7. SQUARIC ACID DIBUTYLESTER [Concomitant]
     Active Substance: SQUARIC ACID DIBUTYL ESTER
     Indication: PRODUCT USED FOR UNKNOWN INDICATION
     Dosage: UNK
     Route: 065
     Dates: start: 20160212
  8. IPILIMUMAB [Suspect]
     Active Substance: IPILIMUMAB
     Indication: PRODUCT USED FOR UNKNOWN INDICATION
     Dosage: 3 MG/KG, UNK
     Route: 041
     Dates: start: 20160302
  9. FLUOROMETHOLONE. [Concomitant]
     Active Substance: FLUOROMETHOLONE
     Indication: PRODUCT USED FOR UNKNOWN INDICATION
     Route: 065
  10. PREDONINE [Concomitant]
     Active Substance: PREDNISOLONE\PREDNISOLONE ACETATE\PREDNISOLONE SODIUM SUCCINATE
     Indication: PYREXIA
     Dosage: UNK
     Route: 065
     Dates: start: 20160217
  11. CRAVIT [Concomitant]
     Active Substance: LEVOFLOXACIN
     Indication: PYREXIA
     Dosage: 500 MG, UNK
     Route: 065
     Dates: start: 20160208, end: 20160218
  12. SANCOBA [Concomitant]
     Active Substance: CYANOCOBALAMIN
     Indication: PRODUCT USED FOR UNKNOWN INDICATION
     Route: 065
  13. RINDERON                           /00008501/ [Concomitant]
     Active Substance: BETAMETHASONE
     Indication: ECZEMA
     Dosage: UNK
     Route: 065
     Dates: start: 20160203

REACTIONS (7)
  - Colitis [Recovered/Resolved]
  - Diarrhoea [Recovered/Resolved]
  - Skin disorder [Recovering/Resolving]
  - Hepatic function abnormal [Unknown]
  - Platelet count decreased [Not Recovered/Not Resolved]
  - Pyrexia [Recovering/Resolving]
  - Malaise [Recovering/Resolving]

NARRATIVE: CASE EVENT DATE: 20160201
